FAERS Safety Report 18610674 (Version 1)
Quarter: 2020Q4

REPORT INFORMATION
  Report Type: Report from Study
  Country: US (occurrence: US)
  Receive Date: 20201214
  Receipt Date: 20201214
  Transmission Date: 20210114
  Serious: Yes (Hospitalization, Other)
  Sender: FDA-Public Use
  Company Number: US-BRISTOL-MYERS SQUIBB COMPANY-BMS-2020-104647

PATIENT
  Sex: Female
  Weight: 46.7 kg

DRUGS (1)
  1. APIXABAN [Suspect]
     Active Substance: APIXABAN
     Indication: CEREBROVASCULAR ACCIDENT PROPHYLAXIS
     Dosage: UNK UNK, BID
     Route: 048
     Dates: start: 201807, end: 201901

REACTIONS (4)
  - Weight decreased [Unknown]
  - Peripheral artery occlusion [Unknown]
  - Gastric haemorrhage [Unknown]
  - Loss of consciousness [Unknown]
